FAERS Safety Report 5733287-3 (Version None)
Quarter: 2008Q2

REPORT INFORMATION
  Report Type: 
  Country: None (occurrence: None)
  Receive Date: 20080509
  Receipt Date: 20080428
  Transmission Date: 20081010
  Serious: Yes (Hospitalization)
  Sender: FDA-Public Use
  Company Number: B0519347A

PATIENT

DRUGS (2)
  1. PAZOPANIB [Suspect]
     Indication: NEOPLASM
     Dosage: 400MG PER DAY
     Dates: start: 20080422, end: 20080427
  2. LAPATINIB [Suspect]
     Indication: NEOPLASM
     Dosage: 1000MG PER DAY
     Dates: start: 20080422, end: 20080427

REACTIONS (1)
  - ILEUS [None]
